FAERS Safety Report 25300035 (Version 2)
Quarter: 2025Q2

REPORT INFORMATION
  Report Type: Spontaneous
  Country: FR (occurrence: FR)
  Receive Date: 20250512
  Receipt Date: 20250612
  Transmission Date: 20250717
  Serious: Yes (Other)
  Sender: MYLAN
  Company Number: None

PATIENT
  Age: 88 Year
  Sex: Female
  Weight: 63.5 kg

DRUGS (68)
  1. AMLODIPINE BESYLATE [Suspect]
     Active Substance: AMLODIPINE BESYLATE
     Indication: Hypertension
     Dosage: 5 MILLIGRAM, QD, IN MORNING
     Dates: start: 20231015, end: 20240221
  2. AMLODIPINE BESYLATE [Suspect]
     Active Substance: AMLODIPINE BESYLATE
     Dosage: 5 MILLIGRAM, QD, IN MORNING
     Route: 048
     Dates: start: 20231015, end: 20240221
  3. AMLODIPINE BESYLATE [Suspect]
     Active Substance: AMLODIPINE BESYLATE
     Dosage: 5 MILLIGRAM, QD, IN MORNING
     Route: 048
     Dates: start: 20231015, end: 20240221
  4. AMLODIPINE BESYLATE [Suspect]
     Active Substance: AMLODIPINE BESYLATE
     Dosage: 5 MILLIGRAM, QD, IN MORNING
     Dates: start: 20231015, end: 20240221
  5. INDAPAMIDE [Suspect]
     Active Substance: INDAPAMIDE
     Indication: Hypertension
     Dosage: 1.5 MILLIGRAM, QD, EXTENDED RELEASE
     Dates: end: 20240221
  6. INDAPAMIDE [Suspect]
     Active Substance: INDAPAMIDE
     Dosage: 1.5 MILLIGRAM, QD, EXTENDED RELEASE
     Route: 048
     Dates: end: 20240221
  7. INDAPAMIDE [Suspect]
     Active Substance: INDAPAMIDE
     Dosage: 1.5 MILLIGRAM, QD, EXTENDED RELEASE
     Route: 048
     Dates: end: 20240221
  8. INDAPAMIDE [Suspect]
     Active Substance: INDAPAMIDE
     Dosage: 1.5 MILLIGRAM, QD, EXTENDED RELEASE
     Dates: end: 20240221
  9. ORENCIA [Suspect]
     Active Substance: ABATACEPT
     Indication: Product used for unknown indication
     Route: 042
     Dates: start: 20230505, end: 20230505
  10. ORENCIA [Suspect]
     Active Substance: ABATACEPT
     Dates: start: 20230505, end: 20230505
  11. ORENCIA [Suspect]
     Active Substance: ABATACEPT
     Dates: start: 20230505, end: 20230505
  12. ORENCIA [Suspect]
     Active Substance: ABATACEPT
     Route: 042
     Dates: start: 20230505, end: 20230505
  13. ORENCIA [Suspect]
     Active Substance: ABATACEPT
     Route: 042
     Dates: start: 20230515, end: 20230515
  14. ORENCIA [Suspect]
     Active Substance: ABATACEPT
     Dates: start: 20230515, end: 20230515
  15. ORENCIA [Suspect]
     Active Substance: ABATACEPT
     Route: 042
     Dates: start: 20230515, end: 20230515
  16. ORENCIA [Suspect]
     Active Substance: ABATACEPT
     Dates: start: 20230515, end: 20230515
  17. ORENCIA [Suspect]
     Active Substance: ABATACEPT
     Dates: start: 20230816, end: 20230816
  18. ORENCIA [Suspect]
     Active Substance: ABATACEPT
     Dates: start: 20230816, end: 20230816
  19. ORENCIA [Suspect]
     Active Substance: ABATACEPT
     Route: 042
     Dates: start: 20230816, end: 20230816
  20. ORENCIA [Suspect]
     Active Substance: ABATACEPT
     Route: 042
     Dates: start: 20230816, end: 20230816
  21. ORENCIA [Suspect]
     Active Substance: ABATACEPT
     Dates: start: 20230913, end: 20230913
  22. ORENCIA [Suspect]
     Active Substance: ABATACEPT
     Dates: start: 20230913, end: 20230913
  23. ORENCIA [Suspect]
     Active Substance: ABATACEPT
     Route: 042
     Dates: start: 20230913, end: 20230913
  24. ORENCIA [Suspect]
     Active Substance: ABATACEPT
     Route: 042
     Dates: start: 20230913, end: 20230913
  25. ORENCIA [Suspect]
     Active Substance: ABATACEPT
     Route: 042
     Dates: start: 20231011, end: 20231011
  26. ORENCIA [Suspect]
     Active Substance: ABATACEPT
     Dates: start: 20231011, end: 20231011
  27. ORENCIA [Suspect]
     Active Substance: ABATACEPT
     Dates: start: 20231011, end: 20231011
  28. ORENCIA [Suspect]
     Active Substance: ABATACEPT
     Route: 042
     Dates: start: 20231011, end: 20231011
  29. ORENCIA [Suspect]
     Active Substance: ABATACEPT
     Dates: start: 20231110, end: 20231110
  30. ORENCIA [Suspect]
     Active Substance: ABATACEPT
     Dates: start: 20231110, end: 20231110
  31. ORENCIA [Suspect]
     Active Substance: ABATACEPT
     Route: 042
     Dates: start: 20231110, end: 20231110
  32. ORENCIA [Suspect]
     Active Substance: ABATACEPT
     Route: 042
     Dates: start: 20231110, end: 20231110
  33. ORENCIA [Suspect]
     Active Substance: ABATACEPT
     Dates: start: 20231220, end: 20231220
  34. ORENCIA [Suspect]
     Active Substance: ABATACEPT
     Dates: start: 20231220, end: 20231220
  35. ORENCIA [Suspect]
     Active Substance: ABATACEPT
     Route: 042
     Dates: start: 20231220, end: 20231220
  36. ORENCIA [Suspect]
     Active Substance: ABATACEPT
     Route: 042
     Dates: start: 20231220, end: 20231220
  37. ORENCIA [Suspect]
     Active Substance: ABATACEPT
     Dates: start: 20240123, end: 20240123
  38. ORENCIA [Suspect]
     Active Substance: ABATACEPT
     Dates: start: 20240123, end: 20240123
  39. ORENCIA [Suspect]
     Active Substance: ABATACEPT
     Route: 042
     Dates: start: 20240123, end: 20240123
  40. ORENCIA [Suspect]
     Active Substance: ABATACEPT
     Route: 042
     Dates: start: 20240123, end: 20240123
  41. ORENCIA [Suspect]
     Active Substance: ABATACEPT
     Dates: start: 20240221, end: 20240221
  42. ORENCIA [Suspect]
     Active Substance: ABATACEPT
     Dates: start: 20240221, end: 20240221
  43. ORENCIA [Suspect]
     Active Substance: ABATACEPT
     Route: 042
     Dates: start: 20240221, end: 20240221
  44. ORENCIA [Suspect]
     Active Substance: ABATACEPT
     Route: 042
     Dates: start: 20240221, end: 20240221
  45. ORENCIA [Suspect]
     Active Substance: ABATACEPT
     Dates: start: 20240327, end: 20240327
  46. ORENCIA [Suspect]
     Active Substance: ABATACEPT
     Route: 042
     Dates: start: 20240327, end: 20240327
  47. ORENCIA [Suspect]
     Active Substance: ABATACEPT
     Dates: start: 20240327, end: 20240327
  48. ORENCIA [Suspect]
     Active Substance: ABATACEPT
     Route: 042
     Dates: start: 20240327, end: 20240327
  49. ACEBUTOLOL HYDROCHLORIDE [Suspect]
     Active Substance: ACEBUTOLOL HYDROCHLORIDE
     Indication: Hypertension
     Dosage: 400 MILLIGRAM, QD
     Dates: end: 20240221
  50. ACEBUTOLOL HYDROCHLORIDE [Suspect]
     Active Substance: ACEBUTOLOL HYDROCHLORIDE
     Dosage: 400 MILLIGRAM, QD
     Route: 048
     Dates: end: 20240221
  51. ACEBUTOLOL HYDROCHLORIDE [Suspect]
     Active Substance: ACEBUTOLOL HYDROCHLORIDE
     Dosage: 400 MILLIGRAM, QD
     Route: 048
     Dates: end: 20240221
  52. ACEBUTOLOL HYDROCHLORIDE [Suspect]
     Active Substance: ACEBUTOLOL HYDROCHLORIDE
     Dosage: 400 MILLIGRAM, QD
     Dates: end: 20240221
  53. ATORVASTATIN [Concomitant]
     Active Substance: ATORVASTATIN
     Indication: Product used for unknown indication
     Dosage: 10 MILLIGRAM, QD
  54. ATORVASTATIN [Concomitant]
     Active Substance: ATORVASTATIN
     Dosage: 10 MILLIGRAM, QD
     Route: 048
  55. ATORVASTATIN [Concomitant]
     Active Substance: ATORVASTATIN
     Dosage: 10 MILLIGRAM, QD
     Route: 048
  56. ATORVASTATIN [Concomitant]
     Active Substance: ATORVASTATIN
     Dosage: 10 MILLIGRAM, QD
  57. CHOLECALCIFEROL [Concomitant]
     Active Substance: CHOLECALCIFEROL
     Indication: Product used for unknown indication
     Dosage: 50000 INTERNATIONAL UNIT, MONTHLY
  58. CHOLECALCIFEROL [Concomitant]
     Active Substance: CHOLECALCIFEROL
     Dosage: 50000 INTERNATIONAL UNIT, MONTHLY
     Route: 048
  59. CHOLECALCIFEROL [Concomitant]
     Active Substance: CHOLECALCIFEROL
     Dosage: 50000 INTERNATIONAL UNIT, MONTHLY
     Route: 048
  60. CHOLECALCIFEROL [Concomitant]
     Active Substance: CHOLECALCIFEROL
     Dosage: 50000 INTERNATIONAL UNIT, MONTHLY
  61. HYDROCHLOROTHIAZIDE\IRBESARTAN [Concomitant]
     Active Substance: HYDROCHLOROTHIAZIDE\IRBESARTAN
     Indication: Product used for unknown indication
     Dosage: 150 MILLIGRAM, QD,1 TABLET IN THE MORNING
  62. HYDROCHLOROTHIAZIDE\IRBESARTAN [Concomitant]
     Active Substance: HYDROCHLOROTHIAZIDE\IRBESARTAN
     Dosage: 150 MILLIGRAM, QD,1 TABLET IN THE MORNING
  63. HYDROCHLOROTHIAZIDE\IRBESARTAN [Concomitant]
     Active Substance: HYDROCHLOROTHIAZIDE\IRBESARTAN
     Dosage: 150 MILLIGRAM, QD,1 TABLET IN THE MORNING
     Route: 048
  64. HYDROCHLOROTHIAZIDE\IRBESARTAN [Concomitant]
     Active Substance: HYDROCHLOROTHIAZIDE\IRBESARTAN
     Dosage: 150 MILLIGRAM, QD,1 TABLET IN THE MORNING
     Route: 048
  65. HYDROCHLOROTHIAZIDE\IRBESARTAN [Concomitant]
     Active Substance: HYDROCHLOROTHIAZIDE\IRBESARTAN
     Dosage: 12.5 MILLIGRAM, QD,1 TABLET IN THE MORNING
  66. HYDROCHLOROTHIAZIDE\IRBESARTAN [Concomitant]
     Active Substance: HYDROCHLOROTHIAZIDE\IRBESARTAN
     Dosage: 12.5 MILLIGRAM, QD,1 TABLET IN THE MORNING
  67. HYDROCHLOROTHIAZIDE\IRBESARTAN [Concomitant]
     Active Substance: HYDROCHLOROTHIAZIDE\IRBESARTAN
     Dosage: 12.5 MILLIGRAM, QD,1 TABLET IN THE MORNING
     Route: 048
  68. HYDROCHLOROTHIAZIDE\IRBESARTAN [Concomitant]
     Active Substance: HYDROCHLOROTHIAZIDE\IRBESARTAN
     Dosage: 12.5 MILLIGRAM, QD,1 TABLET IN THE MORNING
     Route: 048

REACTIONS (1)
  - Psoriasis [Not Recovered/Not Resolved]

NARRATIVE: CASE EVENT DATE: 20240327
